FAERS Safety Report 23224026 (Version 1)
Quarter: 2023Q4

REPORT INFORMATION
  Report Type: Spontaneous
  Country: CA (occurrence: CA)
  Receive Date: 20231124
  Receipt Date: 20231124
  Transmission Date: 20240110
  Serious: Yes (Other)
  Sender: FDA-Public Use
  Company Number: CA-NOVITIUMPHARMA-2023CANVP02038

PATIENT
  Sex: Female

DRUGS (3)
  1. DEXAMETHASONE [Suspect]
     Active Substance: DEXAMETHASONE
     Indication: Premedication
  2. IRON SUCROSE [Concomitant]
     Active Substance: IRON SUCROSE
     Indication: Microcytic anaemia
  3. IRON SUCROSE [Concomitant]
     Active Substance: IRON SUCROSE
     Indication: Iron deficiency

REACTIONS (6)
  - Aortic thrombosis [Unknown]
  - Thrombocytopenia [Unknown]
  - Haemoconcentration [Unknown]
  - Leukocytosis [Unknown]
  - Peripheral ischaemia [Unknown]
  - Gastrointestinal disorder [Unknown]
